FAERS Safety Report 19200302 (Version 1)
Quarter: 2021Q2

REPORT INFORMATION
  Report Type: Spontaneous
  Country: US (occurrence: US)
  Receive Date: 20210430
  Receipt Date: 20210430
  Transmission Date: 20210717
  Serious: Yes (Death)
  Sender: FDA-Public Use
  Company Number: None

PATIENT
  Age: 58 Year
  Sex: Female

DRUGS (16)
  1. MORPHINE SUL [Concomitant]
     Active Substance: MORPHINE SULFATE
  2. MZ/TMP DS [Concomitant]
  3. SPIRIVA HANDIHLR [Concomitant]
  4. TRAMADOL HCL [Concomitant]
     Active Substance: TRAMADOL HYDROCHLORIDE
  5. CEFDINIR. [Concomitant]
     Active Substance: CEFDINIR
  6. LEVALBUTEROL NEB [Concomitant]
  7. COMBIVENT [Concomitant]
     Active Substance: ALBUTEROL SULFATE\IPRATROPIUM BROMIDE
  8. HYDROCO/APAP [Concomitant]
     Active Substance: ACETAMINOPHEN\HYDROCODONE
  9. PROCHLORPER [Concomitant]
  10. SPIRONOLACT [Concomitant]
     Active Substance: SPIRONOLACTONE
  11. PANTOPRAZOLE [Concomitant]
     Active Substance: PANTOPRAZOLE
  12. VALACYCLOVIR [Concomitant]
     Active Substance: VALACYCLOVIR HYDROCHLORIDE
  13. XOLAIR [Suspect]
     Active Substance: OMALIZUMAB
     Indication: ASTHMA
     Route: 058
     Dates: start: 20160315, end: 20210426
  14. LORAZEPAM. [Concomitant]
     Active Substance: LORAZEPAM
  15. ONDANSETRON [Concomitant]
     Active Substance: ONDANSETRON
  16. MONTELUKAST [Concomitant]
     Active Substance: MONTELUKAST SODIUM

REACTIONS (1)
  - Death [None]

NARRATIVE: CASE EVENT DATE: 20210426
